FAERS Safety Report 9240964 (Version 1)
Quarter: 2013Q2

REPORT INFORMATION
  Report Type: Spontaneous
  Country: US (occurrence: None)
  Receive Date: 20130418
  Receipt Date: 20130418
  Transmission Date: 20140414
  Serious: Yes (Other)
  Sender: FDA-Public Use
  Company Number: None

PATIENT
  Sex: Male

DRUGS (1)
  1. XTANDI [Suspect]
     Indication: PROSTATE CANCER
     Dosage: 160MG  QD  PO
     Route: 048
     Dates: start: 20130322

REACTIONS (5)
  - Hot flush [None]
  - Hypoaesthesia [None]
  - Dizziness [None]
  - Nausea [None]
  - Hypoaesthesia [None]
